FAERS Safety Report 8416417-4 (Version None)
Quarter: 2012Q2

REPORT INFORMATION
  Report Type: 
  Country: None (occurrence: None)
  Receive Date: 20120606
  Receipt Date: 20120526
  Transmission Date: 20120825
  Serious: Yes (Death, Other)
  Sender: FDA-Public Use
  Company Number: CA-ELI_LILLY_AND_COMPANY-CA201205009293

PATIENT
  Age: 75 Year
  Sex: Male

DRUGS (7)
  1. KEPPRA [Concomitant]
  2. CELEXA [Concomitant]
  3. SYNTHROID [Concomitant]
  4. FORTEO [Suspect]
     Indication: OSTEOPOROSIS
     Dosage: 20 UG, QD
     Route: 058
     Dates: start: 20101117, end: 20120521
  5. PREDNISONE TAB [Concomitant]
  6. METFORMIN HCL [Concomitant]
  7. ALTACE [Concomitant]

REACTIONS (5)
  - MYOCARDIAL INFARCTION [None]
  - INFECTION [None]
  - MALAISE [None]
  - LOSS OF CONSCIOUSNESS [None]
  - INJECTION SITE PAIN [None]
